FAERS Safety Report 7450239-6 (Version None)
Quarter: 2011Q2

REPORT INFORMATION
  Report Type: 
  Country: None (occurrence: None)
  Receive Date: 20110428
  Receipt Date: 20110428
  Transmission Date: 20111010
  Serious: Yes (Other)
  Sender: FDA-Public Use
  Company Number: None

PATIENT
  Sex: Female
  Weight: 99.7913 kg

DRUGS (2)
  1. TOPIRAMATE [Suspect]
     Indication: CONCUSSION
     Dosage: 100MG PO
     Route: 048
  2. TOPIRAMATE [Suspect]
     Indication: MIGRAINE
     Dosage: 100MG PO
     Route: 048

REACTIONS (10)
  - MEMORY IMPAIRMENT [None]
  - PRODUCT SUBSTITUTION ISSUE [None]
  - HYPOPHAGIA [None]
  - FATIGUE [None]
  - DIZZINESS [None]
  - DISTURBANCE IN ATTENTION [None]
  - NAUSEA [None]
  - BALANCE DISORDER [None]
  - INSOMNIA [None]
  - HYPOAESTHESIA [None]
